FAERS Safety Report 7706083-5 (Version None)
Quarter: 2011Q3

REPORT INFORMATION
  Report Type: 
  Country: None (occurrence: None)
  Receive Date: 20110824
  Receipt Date: 20110809
  Transmission Date: 20111222
  Serious: Yes (Hospitalization)
  Sender: FDA-Public Use
  Company Number: ES-UCBSA-038955

PATIENT
  Sex: Male
  Weight: 85.5 kg

DRUGS (6)
  1. ATENOLOL AND CLORTALIDONE [Concomitant]
     Indication: HYPERTENSION
     Dosage: 1 UNIT ONCE DAILY
     Route: 048
     Dates: start: 20110803
  2. ZONISAMIDE [Concomitant]
     Indication: EPILEPSY
     Route: 048
     Dates: start: 20070701
  3. OXCARBAZEPINE [Concomitant]
     Indication: EPILEPSY
     Dosage: 450-150-450 MG
     Route: 048
     Dates: start: 20050901, end: 20110809
  4. LACOSAMIDE [Suspect]
     Indication: PARTIAL SEIZURES
     Dosage: UNKNOWN DOSE SINCE 13/JUL/2011 TO AUG/2011
     Route: 048
     Dates: start: 20110803, end: 20110801
  5. SIMAVASTATIN [Concomitant]
     Indication: HYPERCHOLESTEROLAEMIA
     Route: 048
     Dates: start: 20000101
  6. BARNIDIPINE [Concomitant]
     Indication: HYPERTENSION
     Dosage: 20 MG
     Dates: end: 20110803

REACTIONS (2)
  - HYPOCHLORAEMIA [None]
  - HYPONATRAEMIA [None]
